FAERS Safety Report 9194801 (Version 1)
Quarter: 2013Q1

REPORT INFORMATION
  Report Type: Spontaneous
  Country: US (occurrence: US)
  Receive Date: 20130328
  Receipt Date: 20130328
  Transmission Date: 20140127
  Serious: No
  Sender: FDA-Public Use
  Company Number: US-ALLERGAN-1210802US

PATIENT
  Age: 70 Year
  Sex: Female

DRUGS (4)
  1. LATISSE 0.03% [Suspect]
     Indication: GROWTH OF EYELASHES
     Dosage: 2 GTT, QHS
     Route: 061
     Dates: end: 201203
  2. PERMANENT MAKE -UP [Concomitant]
  3. ARTIFICIAL TEARS [Concomitant]
  4. LISINOPRIL [Concomitant]
     Indication: HYPERTENSION

REACTIONS (2)
  - Intraocular pressure increased [Recovered/Resolved]
  - Inappropriate schedule of drug administration [Unknown]
